FAERS Safety Report 5891764-9 (Version None)
Quarter: 2008Q3

REPORT INFORMATION
  Report Type: 
  Country: None (occurrence: None)
  Receive Date: 20080922
  Receipt Date: 20080912
  Transmission Date: 20090109
  Serious: Yes (Death)
  Sender: FDA-Public Use
  Company Number: DE-PFIZER INC-2008068115

PATIENT
  Age: 41 Year
  Sex: Male
  Weight: 124 kg

DRUGS (9)
  1. SU-011,248 [Suspect]
     Indication: METASTATIC RENAL CELL CARCINOMA
     Route: 048
     Dates: start: 20070611
  2. AMITRIPTYLINE HCL [Concomitant]
  3. BISOPROLOL FUMARATE [Concomitant]
  4. ZOLPIDEM [Concomitant]
  5. CANDESARTAN [Concomitant]
  6. OXYCODONE HCL [Concomitant]
  7. METAMIZOLE [Concomitant]
  8. METAMIZOLE [Concomitant]
  9. SIROLIMUS [Concomitant]

REACTIONS (1)
  - NO ADVERSE EVENT [None]
